FAERS Safety Report 18399518 (Version 4)
Quarter: 2025Q3

REPORT INFORMATION
  Report Type: Spontaneous
  Country: EU (occurrence: EU)
  Receive Date: 20201019
  Receipt Date: 20250811
  Transmission Date: 20251020
  Serious: Yes (Life-Threatening, Hospitalization, Other)
  Sender: ALEXION PHARMACEUTICALS
  Company Number: None

PATIENT
  Age: 60 Year
  Sex: Female

DRUGS (24)
  1. TICAGRELOR [Interacting]
     Active Substance: TICAGRELOR
     Indication: Acute coronary syndrome
  2. TICAGRELOR [Interacting]
     Active Substance: TICAGRELOR
     Indication: Antiplatelet therapy
     Dosage: 80 MILLIGRAM, QD
  3. MORPHINE [Interacting]
     Active Substance: MORPHINE
     Indication: Product used for unknown indication
  4. MORPHINE [Interacting]
     Active Substance: MORPHINE
     Indication: Antiplatelet therapy
  5. EVEROLIMUS [Concomitant]
     Active Substance: EVEROLIMUS
     Indication: Acute coronary syndrome
     Route: 065
  6. ASPIRIN [Concomitant]
     Active Substance: ASPIRIN
     Indication: Product used for unknown indication
  7. ASPIRIN [Concomitant]
     Active Substance: ASPIRIN
     Indication: Antiplatelet therapy
  8. TIROFIBAN [Concomitant]
     Active Substance: TIROFIBAN
  9. RAMIPRIL [Concomitant]
     Active Substance: RAMIPRIL
     Indication: Product used for unknown indication
     Dosage: 5 MILLIGRAM, QD
  10. BISOPROLOL [Concomitant]
     Active Substance: BISOPROLOL
     Indication: Product used for unknown indication
     Dosage: 2.5 MILLIGRAM, QD
  11. ATORVASTATIN [Concomitant]
     Active Substance: ATORVASTATIN
     Indication: Product used for unknown indication
     Dosage: 80 MILLIGRAM, QD
     Route: 065
  12. ASPIRIN [Suspect]
     Active Substance: ASPIRIN
     Indication: Antiplatelet therapy
  13. ASPIRIN [Suspect]
     Active Substance: ASPIRIN
     Indication: Antiplatelet therapy
     Dosage: 100 MILLIGRAM, QD
  14. CANGRELOR TETRASODIUM [Suspect]
     Active Substance: CANGRELOR TETRASODIUM
     Indication: Antiplatelet therapy
  15. CANGRELOR TETRASODIUM [Suspect]
     Active Substance: CANGRELOR TETRASODIUM
     Dosage: 4 MICROGRAM/KILOGRAM, QMINUTE
  16. EVEROLIMUS [Suspect]
     Active Substance: EVEROLIMUS
     Indication: Acute myocardial infarction
  17. EVEROLIMUS [Suspect]
     Active Substance: EVEROLIMUS
     Indication: Acute coronary syndrome
  18. FENTANYL [Interacting]
     Active Substance: FENTANYL
     Indication: Product used for unknown indication
  19. HEPARIN [Suspect]
     Active Substance: HEPARIN SODIUM
     Indication: Product used for unknown indication
  20. TICAGRELOR [Interacting]
     Active Substance: TICAGRELOR
  21. TICAGRELOR [Interacting]
     Active Substance: TICAGRELOR
  22. TIROFIBAN [Suspect]
     Active Substance: TIROFIBAN
     Indication: Antiplatelet therapy
     Dosage: 0.4 MICROGRAM/KILOGRAM, QMINUTE
  23. TIROFIBAN [Suspect]
     Active Substance: TIROFIBAN
     Dosage: 0.1 MICROGRAM/KILOGRAM, QMINUTE
  24. WARFARIN [Suspect]
     Active Substance: WARFARIN
     Indication: Antiplatelet therapy

REACTIONS (19)
  - Vascular stent thrombosis [Recovered/Resolved]
  - Drug interaction [Unknown]
  - Rectal haemorrhage [Unknown]
  - Colitis ischaemic [Recovered/Resolved]
  - Vascular stent thrombosis [Unknown]
  - Hypersensitivity [Unknown]
  - Drug level decreased [Unknown]
  - Hypotension [Unknown]
  - Off label use [Unknown]
  - Product use in unapproved indication [Unknown]
  - Drug interaction [Unknown]
  - Nausea [Unknown]
  - Colitis ischaemic [Unknown]
  - Acute myocardial infarction [Unknown]
  - Erythema [Unknown]
  - Electrocardiogram ST segment elevation [Unknown]
  - Eosinophilia [Unknown]
  - Thrombocytopenia [Unknown]
  - Eosinophil cationic protein increased [Unknown]
